FAERS Safety Report 10187344 (Version 1)
Quarter: 2014Q2

REPORT INFORMATION
  Report Type: Spontaneous
  Country: US (occurrence: US)
  Receive Date: 20140522
  Receipt Date: 20140522
  Transmission Date: 20141212
  Serious: No
  Sender: FDA-Public Use
  Company Number: US-PFIZER INC-2014136387

PATIENT
  Age: 54 Year
  Sex: Female
  Weight: 115.65 kg

DRUGS (4)
  1. LYRICA [Suspect]
     Indication: BURNING SENSATION
     Dosage: 50 MG, 2X/DAY
     Dates: start: 2014
  2. CELEBREX [Concomitant]
     Indication: ARTHRITIS
     Dosage: 200 MG, UP TO 2 TIMES A DAY
  3. SYNTHROID [Concomitant]
     Indication: THYROID DISORDER
     Dosage: 112 UG, DAILY
  4. HYDROCODONE W/ACETAMINOPHEN [Concomitant]
     Dosage: HYDROCODONE 10MG/ACETAMINOPHEN 325 MG

REACTIONS (3)
  - Intentional product misuse [Unknown]
  - Burning sensation [Unknown]
  - Insomnia [Unknown]
